FAERS Safety Report 18578921 (Version 2)
Quarter: 2021Q2

REPORT INFORMATION
  Report Type: Spontaneous
  Country: CA (occurrence: CA)
  Receive Date: 20201204
  Receipt Date: 20210518
  Transmission Date: 20210717
  Serious: Yes (Other)
  Sender: FDA-Public Use
  Company Number: CA-SAMSUNG BIOEPIS-SB-2020-36325

PATIENT
  Age: 56 Year
  Sex: Female
  Weight: 77 kg

DRUGS (1)
  1. INFLIXIMAB [Suspect]
     Active Substance: INFLIXIMAB
     Indication: CROHN^S DISEASE
     Route: 042

REACTIONS (5)
  - Condition aggravated [Unknown]
  - Heart rate decreased [Unknown]
  - Retinal detachment [Unknown]
  - Intentional product use issue [Unknown]
  - Off label use [Unknown]
